FAERS Safety Report 19002841 (Version 1)
Quarter: 2021Q1

REPORT INFORMATION
  Report Type: Spontaneous
  Country: PT (occurrence: PT)
  Receive Date: 20210312
  Receipt Date: 20210312
  Transmission Date: 20210420
  Serious: Yes (Other)
  Sender: FDA-Public Use
  Company Number: PT-TAKEDA-2021TUS015016

PATIENT
  Age: 64 Year
  Sex: Male

DRUGS (2)
  1. ADENURIC [Suspect]
     Active Substance: FEBUXOSTAT
     Indication: HYPERURICAEMIA
     Dosage: 80 MILLIGRAM, QD
     Route: 048
     Dates: start: 20210207, end: 20210215
  2. ZARATOR [ATORVASTATIN CALCIUM] [Concomitant]
     Dosage: 20 MILLIGRAM
     Route: 065

REACTIONS (3)
  - Chest pain [Recovered/Resolved]
  - Limb discomfort [Recovered/Resolved]
  - Chest discomfort [Recovered/Resolved]

NARRATIVE: CASE EVENT DATE: 20210215
